FAERS Safety Report 8558433-8 (Version None)
Quarter: 2012Q3

REPORT INFORMATION
  Report Type: 
  Country: None (occurrence: None)
  Receive Date: 20120727
  Receipt Date: 20120727
  Transmission Date: 20120928
  Serious: Yes (Other)
  Sender: FDA-Public Use
  Company Number: None

PATIENT
  Age: 65 Year
  Sex: Male

DRUGS (1)
  1. ACTHAR-GEL INJ [Suspect]
     Indication: MULTIPLE SCLEROSIS
     Dosage: 1 ML (80 UNITS DAILY) IM
     Route: 030
     Dates: start: 20120625

REACTIONS (5)
  - SKIN IRRITATION [None]
  - DRUG INEFFECTIVE [None]
  - ABDOMINAL DISTENSION [None]
  - PALPITATIONS [None]
  - HALLUCINATION [None]
